FAERS Safety Report 18398261 (Version 1)
Quarter: 2020Q4

REPORT INFORMATION
  Report Type: Spontaneous
  Country: US (occurrence: US)
  Receive Date: 20201019
  Receipt Date: 20201019
  Transmission Date: 20210114
  Serious: Yes (Death, Hospitalization)
  Sender: FDA-Public Use
  Company Number: US-TAKEDA-2020TUS043006

PATIENT
  Age: 85 Year
  Sex: Female

DRUGS (1)
  1. NINLARO [Suspect]
     Active Substance: IXAZOMIB CITRATE
     Indication: ESSENTIAL HYPERTENSION
     Dosage: 120 MILLIGRAM
     Route: 058
     Dates: start: 20190227

REACTIONS (2)
  - Off label use [Unknown]
  - Hospitalisation [Fatal]

NARRATIVE: CASE EVENT DATE: 20200930
